FAERS Safety Report 6568518-3 (Version None)
Quarter: 2010Q1

REPORT INFORMATION
  Report Type: 
  Country: None (occurrence: None)
  Receive Date: 20100203
  Receipt Date: 20100125
  Transmission Date: 20100710
  Serious: Yes (Life-Threatening, Hospitalization)
  Sender: FDA-Public Use
  Company Number: BE-BRISTOL-MYERS SQUIBB COMPANY-14949010

PATIENT
  Age: 48 Year
  Sex: Female

DRUGS (2)
  1. TRAZODONE HCL [Suspect]
     Indication: DEPRESSION
  2. VENLAFAXINE HCL [Suspect]
     Indication: DEPRESSION

REACTIONS (2)
  - ACUTE HEPATIC FAILURE [None]
  - LIVER TRANSPLANT [None]
